FAERS Safety Report 24328257 (Version 3)
Quarter: 2024Q4

REPORT INFORMATION
  Report Type: Report from Study
  Country: US (occurrence: US)
  Receive Date: 20240917
  Receipt Date: 20241106
  Transmission Date: 20250114
  Serious: No
  Sender: SUNOVION
  Company Number: US-SMPA-2024SPA001732AA

PATIENT

DRUGS (1)
  1. ORGOVYX [Suspect]
     Active Substance: RELUGOLIX
     Indication: Prostate cancer
     Dosage: 120 MG, QD
     Route: 048
     Dates: start: 20240724

REACTIONS (11)
  - Pallor [Unknown]
  - Weight decreased [Unknown]
  - Irritability [Unknown]
  - Hypophagia [Unknown]
  - Illness [Unknown]
  - Feeling abnormal [Unknown]
  - Malaise [Unknown]
  - Adverse drug reaction [Not Recovered/Not Resolved]
  - Fatigue [Unknown]
  - Asthenia [Unknown]
  - Incorrect dose administered [Unknown]
